FAERS Safety Report 24877013 (Version 1)
Quarter: 2025Q1

REPORT INFORMATION
  Report Type: Spontaneous
  Country: JP (occurrence: JP)
  Receive Date: 20250123
  Receipt Date: 20250123
  Transmission Date: 20250409
  Serious: Yes (Other)
  Sender: ROCHE
  Company Number: JP-CHUGAI-2025001074

PATIENT
  Age: 7 Decade
  Sex: Female

DRUGS (1)
  1. KADCYLA [Suspect]
     Active Substance: ADO-TRASTUZUMAB EMTANSINE
     Indication: Breast cancer
     Route: 042
     Dates: end: 2024

REACTIONS (6)
  - Labile blood pressure [Unknown]
  - Epistaxis [Unknown]
  - Genital haemorrhage [Unknown]
  - Ocular hyperaemia [Unknown]
  - Pain [Recovering/Resolving]
  - Hypoaesthesia [Unknown]
